FAERS Safety Report 9912941 (Version 1)
Quarter: 2014Q1

REPORT INFORMATION
  Report Type: Spontaneous
  Country: US (occurrence: None)
  Receive Date: 20140218
  Receipt Date: 20140218
  Transmission Date: 20141002
  Serious: Yes (Hospitalization)
  Sender: FDA-Public Use
  Company Number: None

PATIENT
  Age: 55 Year
  Sex: Male
  Weight: 85.1 kg

DRUGS (2)
  1. LISINOPRIL [Suspect]
     Indication: HYPERTENSION
     Route: 048
     Dates: start: 20131028, end: 20131214
  2. GLIPIZIDE [Suspect]
     Indication: DIABETES MELLITUS
     Route: 048
     Dates: start: 20131030, end: 20131214

REACTIONS (4)
  - Rash macular [None]
  - Liver function test abnormal [None]
  - Eosinophilia [None]
  - Angioedema [None]
